FAERS Safety Report 6771917-8 (Version None)
Quarter: 2010Q2

REPORT INFORMATION
  Report Type: 
  Country: None (occurrence: None)
  Receive Date: 20100616
  Receipt Date: 20100528
  Transmission Date: 20101027
  Serious: No
  Sender: FDA-Public Use
  Company Number: US-JNJFOC-20100600521

PATIENT
  Age: 30 Year
  Sex: Female

DRUGS (3)
  1. INVEGA SUSTENNA [Suspect]
     Indication: SCHIZOPHRENIA
     Route: 030
  2. TRAZODONE HYDROCHLORIDE [Concomitant]
     Route: 048
  3. LITHIUM [Concomitant]
     Route: 048

REACTIONS (1)
  - MUSCULOSKELETAL STIFFNESS [None]
